APPROVED DRUG PRODUCT: METOPROLOL SUCCINATE
Active Ingredient: METOPROLOL SUCCINATE
Strength: EQ 50MG TARTRATE
Dosage Form/Route: TABLET, EXTENDED RELEASE;ORAL
Application: A204161 | Product #002 | TE Code: AB
Applicant: ACTAVIS ELIZABETH LLC
Approved: Nov 25, 2016 | RLD: No | RS: No | Type: RX